FAERS Safety Report 7385750-X (Version None)
Quarter: 2011Q1

REPORT INFORMATION
  Report Type: 
  Country: None (occurrence: None)
  Receive Date: 20110331
  Receipt Date: 20100914
  Transmission Date: 20110831
  Serious: No
  Sender: FDA-Public Use
  Company Number: US-BAYER-201029484NA

PATIENT
  Weight: 92.063 kg

DRUGS (10)
  1. YASMIN [Suspect]
     Indication: ORAL CONTRACEPTION
     Dosage: UNK
     Dates: start: 20050101, end: 20100101
  2. YASMIN [Suspect]
     Indication: PREMENSTRUAL SYNDROME
  3. YAZ [Suspect]
     Indication: PREMENSTRUAL SYNDROME
  4. NORTRIPTYLINE HCL [Concomitant]
     Indication: TENSION HEADACHE
  5. ALBUTEROL [Concomitant]
  6. OCELLA [Suspect]
     Indication: ORAL CONTRACEPTION
  7. MIDRIN [Concomitant]
  8. FLOVENT [Concomitant]
  9. OCELLA [Suspect]
     Indication: PREMENSTRUAL SYNDROME
     Dosage: UNK
     Dates: start: 20050101, end: 20100101
  10. YAZ [Suspect]
     Indication: ORAL CONTRACEPTION
     Dosage: UNK
     Dates: start: 20050101, end: 20100101

REACTIONS (1)
  - INJURY [None]
